FAERS Safety Report 7698710-6 (Version None)
Quarter: 2011Q3

REPORT INFORMATION
  Report Type: 
  Country: None (occurrence: None)
  Receive Date: 20110819
  Receipt Date: 20110809
  Transmission Date: 20111222
  Serious: Yes (Other)
  Sender: FDA-Public Use
  Company Number: US-JNJFOC-20110805820

PATIENT
  Age: 59 Year
  Sex: Male

DRUGS (4)
  1. LEFLUNOMIDE [Concomitant]
     Route: 065
  2. INFLIXIMAB, RECOMBINANT [Suspect]
     Indication: RHEUMATOID ARTHRITIS
     Route: 042
  3. METHOTREXATE [Concomitant]
     Route: 065
  4. PREDNISONE [Concomitant]
     Route: 065

REACTIONS (2)
  - HISTOPLASMOSIS [None]
  - FUNGAEMIA [None]
